FAERS Safety Report 8955478 (Version 1)
Quarter: 2012Q4

REPORT INFORMATION
  Report Type: 
  Country: JP (occurrence: JP)
  Receive Date: 20121207
  Receipt Date: 20121207
  Transmission Date: 20130627
  Serious: Yes (Hospitalization)
  Sender: FDA-Public Use
  Company Number: JP-ROCHE-1164120

PATIENT
  Age: 64 Year
  Sex: Female
  Weight: 66 kg

DRUGS (8)
  1. ACTEMRA [Suspect]
     Indication: RHEUMATOID ARTHRITIS
     Route: 041
     Dates: start: 20090512
  2. AMOBAN [Concomitant]
     Route: 048
  3. LANSOPRAZOLE [Concomitant]
     Route: 048
  4. PREDNISOLONE [Concomitant]
     Route: 048
  5. MOBIC [Concomitant]
     Route: 048
  6. KETOPROFEN [Concomitant]
     Route: 062
  7. METHOTREXATE [Concomitant]
     Route: 048
  8. FORTEO [Concomitant]
     Route: 058

REACTIONS (1)
  - Stress cardiomyopathy [Recovered/Resolved]
